FAERS Safety Report 4633803-9 (Version None)
Quarter: 2005Q2

REPORT INFORMATION
  Report Type: 
  Country: None (occurrence: None)
  Receive Date: 20050408
  Receipt Date: 20050330
  Transmission Date: 20051028
  Serious: Yes (Hospitalization)
  Sender: FDA-Public Use
  Company Number: 05P-163-0288775-00

PATIENT
  Age: 73 Year
  Sex: Male
  Weight: 47.6277 kg

DRUGS (2)
  1. HUMIRA [Suspect]
     Indication: RHEUMATOID ARTHRITIS
     Dosage: 40 MG, 1 IN 2 WK, SUBCUTANEOUS
     Route: 058
     Dates: start: 20041101, end: 20050101
  2. LEVOTHYROXINE SODIUM [Concomitant]

REACTIONS (8)
  - ANAEMIA [None]
  - ANOREXIA [None]
  - ASTHENIA [None]
  - CONDITION AGGRAVATED [None]
  - CONFUSIONAL STATE [None]
  - DEHYDRATION [None]
  - MYOCARDIAL INFARCTION [None]
  - RHEUMATOID ARTHRITIS [None]
